FAERS Safety Report 20304212 (Version 1)
Quarter: 2022Q1

REPORT INFORMATION
  Report Type: Spontaneous
  Country: BE (occurrence: BE)
  Receive Date: 20220106
  Receipt Date: 20220106
  Transmission Date: 20220424
  Serious: Yes (Hospitalization)
  Sender: FDA-Public Use
  Company Number: None

PATIENT
  Age: 69 Year
  Sex: Female

DRUGS (10)
  1. CLOZAPINE [Suspect]
     Active Substance: CLOZAPINE
     Indication: Mental disorder
     Dosage: UNK DOSAGE LEPONEX IS NOT EXACTLY KNOWN.
     Route: 048
     Dates: start: 20211027, end: 20211108
  2. ALGOSTASE [Concomitant]
     Dosage: UNK
  3. RASAGILINE [Concomitant]
     Active Substance: RASAGILINE
     Dosage: UNK
  4. CHOLECALCIFEROL [Concomitant]
     Active Substance: CHOLECALCIFEROL
     Dosage: UNK
  5. LAMOTRIGINE [Concomitant]
     Active Substance: LAMOTRIGINE
     Dosage: UNK
  6. NEUPOGEN [Concomitant]
     Active Substance: FILGRASTIM
     Dosage: 300 MICROGRAM
     Dates: start: 20211112
  7. NEUPOGEN [Concomitant]
     Active Substance: FILGRASTIM
     Dosage: 300 MICROGRAM
     Dates: start: 20211119
  8. VANCOMYCIN [Concomitant]
     Active Substance: VANCOMYCIN
     Dosage: 1250 MILLIGRAM
     Dates: end: 20211119
  9. CEFEPIME [Concomitant]
     Active Substance: CEFEPIME HYDROCHLORIDE
     Indication: Pyrexia
     Dosage: 2 GRAM
     Dates: end: 20211119
  10. ZOVIRAX [Concomitant]
     Active Substance: ACYCLOVIR
     Dosage: 5 MILLIGRAM
     Dates: end: 20211119

REACTIONS (10)
  - Cough [Recovered/Resolved]
  - Aphthous ulcer [Recovered/Resolved]
  - Febrile neutropenia [Recovered/Resolved]
  - Pyrexia [Recovered/Resolved]
  - Thrombocytosis [Recovered/Resolved]
  - C-reactive protein increased [Recovered/Resolved]
  - Liver function test abnormal [Recovered/Resolved]
  - Jaundice [Recovered/Resolved]
  - Neutropenia [Recovered/Resolved]
  - Agranulocytosis [Recovered/Resolved]

NARRATIVE: CASE EVENT DATE: 20211108
